FAERS Safety Report 9371900 (Version 1)
Quarter: 2013Q2

REPORT INFORMATION
  Report Type: Spontaneous
  Country: CO (occurrence: CO)
  Receive Date: 20130627
  Receipt Date: 20130627
  Transmission Date: 20140414
  Serious: Yes (Other)
  Sender: FDA-Public Use
  Company Number: CO-AMGEN-COLSP2013044941

PATIENT
  Age: 43 Year
  Sex: Female

DRUGS (2)
  1. ENBREL [Suspect]
     Indication: ANKYLOSING SPONDYLITIS
     Dosage: 50 MG, WEEKLY
     Route: 058
     Dates: start: 201208, end: 201305
  2. SULFASALAZIN [Concomitant]
     Indication: ANKYLOSING SPONDYLITIS
     Dosage: 500 MG, 4X/DAY
     Route: 048
     Dates: start: 201112

REACTIONS (6)
  - Gastric ulcer [Recovered/Resolved]
  - Fatigue [Recovered/Resolved]
  - Inflammation [Recovered/Resolved]
  - Nausea [Recovered/Resolved]
  - Differential white blood cell count abnormal [Unknown]
  - Joint swelling [Unknown]
